FAERS Safety Report 5274136-X (Version None)
Quarter: 2007Q1

REPORT INFORMATION
  Report Type: 
  Country: None (occurrence: None)
  Receive Date: 20070323
  Receipt Date: 20070313
  Transmission Date: 20070707
  Serious: Yes (Life-Threatening, Other)
  Sender: FDA-Public Use
  Company Number: GB-ABBOTT-07P-167-0361843-00

PATIENT
  Age: 18 Year
  Sex: Male
  Weight: 58 kg

DRUGS (4)
  1. CLARITHROMYCIN [Suspect]
     Indication: LOWER RESPIRATORY TRACT INFECTION
     Route: 048
     Dates: start: 20070215, end: 20070216
  2. ACETAMINOPHEN [Concomitant]
     Indication: INFLUENZA LIKE ILLNESS
     Dates: start: 20070214
  3. BUDESONIDE [Concomitant]
     Indication: ASTHMA
  4. TERBUTALINE SULFATE [Concomitant]
     Indication: ASTHMA

REACTIONS (5)
  - DELUSION [None]
  - FALL [None]
  - MULTIPLE INJURIES [None]
  - NIGHTMARE [None]
  - PYREXIA [None]
